FAERS Safety Report 7032496-3 (Version None)
Quarter: 2010Q4

REPORT INFORMATION
  Report Type: 
  Country: None (occurrence: None)
  Receive Date: 20101007
  Receipt Date: 20100928
  Transmission Date: 20110411
  Serious: Yes (Other)
  Sender: FDA-Public Use
  Company Number: TR-JNJFOC-20100907910

PATIENT

DRUGS (1)
  1. SPORANOX [Suspect]
     Indication: FEBRILE NEUTROPENIA
     Route: 048

REACTIONS (1)
  - NEOPLASM [None]
